FAERS Safety Report 4741941-5 (Version None)
Quarter: 2005Q3

REPORT INFORMATION
  Report Type: 
  Country: None (occurrence: None)
  Receive Date: 20050801
  Receipt Date: 20041019
  Transmission Date: 20060218
  Serious: Yes (Hospitalization)
  Sender: FDA-Public Use
  Company Number: 209808

PATIENT
  Age: 62 Year
  Sex: Female
  Weight: 80.3 kg

DRUGS (12)
  1. HERCEPTIN [Suspect]
     Indication: BREAST CANCER METASTATIC
     Dosage: SEE IMAGE
     Route: 042
     Dates: start: 20031104, end: 20031121
  2. HERCEPTIN [Suspect]
     Indication: BREAST CANCER METASTATIC
     Dosage: SEE IMAGE
     Route: 042
     Dates: start: 20031211, end: 20031218
  3. HERCEPTIN [Suspect]
     Indication: BREAST CANCER METASTATIC
     Dosage: SEE IMAGE
     Route: 042
     Dates: start: 20031231, end: 20031218
  4. HERCEPTIN [Suspect]
     Indication: BREAST CANCER METASTATIC
     Dosage: SEE IMAGE
     Route: 042
     Dates: start: 20031106, end: 20040318
  5. HERCEPTIN [Suspect]
     Indication: BREAST CANCER METASTATIC
     Dosage: SEE IMAGE
     Route: 042
     Dates: start: 20040330, end: 20040601
  6. HERCEPTIN [Suspect]
     Indication: BREAST CANCER METASTATIC
     Dosage: SEE IMAGE
     Route: 042
     Dates: start: 20031218
  7. LASIX [Concomitant]
  8. COZAAR [Concomitant]
  9. ALDACTONE [Concomitant]
  10. DIGOXIN [Concomitant]
  11. COREG [Concomitant]
  12. COUMADIN [Concomitant]

REACTIONS (1)
  - CARDIAC FAILURE CONGESTIVE [None]
